FAERS Safety Report 18037981 (Version 3)
Quarter: 2020Q3

REPORT INFORMATION
  Report Type: Report from Study
  Country: None (occurrence: CA)
  Receive Date: 20200718
  Receipt Date: 20200804
  Transmission Date: 20201103
  Serious: Yes (Hospitalization, Other)
  Sender: FDA-Public Use
  Company Number: CA-ABBVIE-20K-028-3468438-00

PATIENT
  Age: 40 Year
  Sex: Female

DRUGS (2)
  1. HUMIRA [Suspect]
     Active Substance: ADALIMUMAB
     Route: 058
     Dates: start: 20200714, end: 20200720
  2. HUMIRA [Suspect]
     Active Substance: ADALIMUMAB
     Indication: CROHN^S DISEASE
     Route: 058
     Dates: start: 20120910, end: 20200629

REACTIONS (18)
  - Nausea [Recovered/Resolved]
  - Gastrointestinal haemorrhage [Unknown]
  - Fatigue [Not Recovered/Not Resolved]
  - Haematochezia [Recovered/Resolved]
  - Nausea [Recovered/Resolved]
  - Haemorrhoidal haemorrhage [Recovered/Resolved]
  - Uterine leiomyoma [Unknown]
  - Abnormal faeces [Recovered/Resolved]
  - Abnormal faeces [Not Recovered/Not Resolved]
  - Hypotension [Unknown]
  - Gastrointestinal procedural complication [Unknown]
  - Haemorrhoids [Recovered/Resolved]
  - Malaise [Not Recovered/Not Resolved]
  - Thrombosis [Recovered/Resolved]
  - Haemorrhoids [Not Recovered/Not Resolved]
  - Pallor [Recovered/Resolved]
  - Gastrointestinal haemorrhage [Recovered/Resolved]
  - Diarrhoea haemorrhagic [Not Recovered/Not Resolved]

NARRATIVE: CASE EVENT DATE: 202006
